FAERS Safety Report 6679698-3 (Version None)
Quarter: 2010Q2

REPORT INFORMATION
  Report Type: 
  Country: None (occurrence: None)
  Receive Date: 20100413
  Receipt Date: 20100408
  Transmission Date: 20101027
  Serious: Yes (Hospitalization, Other)
  Sender: FDA-Public Use
  Company Number: JP-BAYER-200811492BYL

PATIENT
  Age: 73 Year
  Sex: Male
  Weight: 56 kg

DRUGS (2)
  1. NEXAVAR [Suspect]
     Indication: RENAL CELL CARCINOMA
     Dosage: AS USED: 800 MG  UNIT DOSE: 200 MG
     Route: 048
     Dates: start: 20080616, end: 20080623
  2. ZOLADEX [Concomitant]
     Route: 058
     Dates: start: 20060113, end: 20080704

REACTIONS (1)
  - CEREBRAL INFARCTION [None]
